FAERS Safety Report 4718797-X (Version None)
Quarter: 2005Q3

REPORT INFORMATION
  Report Type: 
  Country: None (occurrence: None)
  Receive Date: 20050719
  Receipt Date: 20050707
  Transmission Date: 20060218
  Serious: Yes (Other)
  Sender: FDA-Public Use
  Company Number: 2005099254

PATIENT
  Sex: Male

DRUGS (1)
  1. BENADRYL [Suspect]
     Indication: ANAPHYLACTIC REACTION
     Dosage: INTRAVENOUS
     Route: 042

REACTIONS (2)
  - COMA [None]
  - DRUG HYPERSENSITIVITY [None]
